FAERS Safety Report 15900581 (Version 1)
Quarter: 2019Q1

REPORT INFORMATION
  Report Type: Spontaneous
  Country: US (occurrence: US)
  Receive Date: 20190131
  Receipt Date: 20190131
  Transmission Date: 20190417
  Serious: Yes (Other)
  Sender: FDA-Public Use
  Company Number: None

PATIENT
  Age: 2 Month
  Sex: Male
  Weight: 9 kg

DRUGS (2)
  1. INFANTS IBUPROFEN [Suspect]
     Active Substance: IBUPROFEN
     Indication: PYREXIA
     Route: 048
     Dates: start: 20190124, end: 20190124
  2. INFANTS IBUPROFEN [Suspect]
     Active Substance: IBUPROFEN
     Indication: PAIN
     Route: 048
     Dates: start: 20190124, end: 20190124

REACTIONS (3)
  - Somnolence [None]
  - Product complaint [None]
  - Drug effect prolonged [None]

NARRATIVE: CASE EVENT DATE: 20190124
